FAERS Safety Report 6500120-1 (Version None)
Quarter: 2009Q4

REPORT INFORMATION
  Report Type: 
  Country: None (occurrence: None)
  Receive Date: 20091214
  Receipt Date: 20091214
  Transmission Date: 20100525
  Serious: Yes (Other)
  Sender: FDA-Public Use
  Company Number: None

PATIENT
  Sex: Male
  Weight: 117.9352 kg

DRUGS (2)
  1. LOVAZA [Suspect]
     Indication: BLOOD CHOLESTEROL INCREASED
     Dosage: 2 CAPS TWICE DAILY BY MOUTH
     Route: 048
     Dates: start: 20090901
  2. LOVAZA [Suspect]
     Indication: BLOOD CHOLESTEROL INCREASED
     Dosage: 2 CAPS TWICE DAILY BY MOUTH
     Route: 048
     Dates: start: 20091124

REACTIONS (7)
  - ASTHENIA [None]
  - DECREASED APPETITE [None]
  - DIARRHOEA HAEMORRHAGIC [None]
  - GROIN PAIN [None]
  - NAUSEA [None]
  - PAIN IN EXTREMITY [None]
  - VOMITING [None]
